FAERS Safety Report 21526009 (Version 3)
Quarter: 2022Q4

REPORT INFORMATION
  Report Type: Other
  Country: NL (occurrence: NL)
  Receive Date: 20221031
  Receipt Date: 20221115
  Transmission Date: 20230113
  Serious: Yes (Other)
  Sender: FDA-Public Use
  Company Number: NL-ABBVIE-4154767

PATIENT
  Age: 59 Year

DRUGS (4)
  1. VENETOCLAX [Suspect]
     Active Substance: VENETOCLAX
     Indication: Chronic lymphocytic leukaemia
     Dosage: DURATION TEXT: 2 YEARS PLUS RAMP-UP PERIOD TIME
     Route: 048
     Dates: start: 2020, end: 20221008
  2. RITUXIMAB [Suspect]
     Active Substance: RITUXIMAB
     Indication: Chronic lymphocytic leukaemia
     Dosage: DURATION TEXT: RAMP-UP PERIOD
     Route: 065
  3. IBRUTINIB [Suspect]
     Active Substance: IBRUTINIB
     Indication: Chronic lymphocytic leukaemia
     Route: 065
  4. COVID-19 VACCINE [Concomitant]
     Indication: COVID-19 immunisation
     Dosage: 3 FREQUENCY:1 IN ONCE

REACTIONS (4)
  - COVID-19 [Unknown]
  - Fatigue [Unknown]
  - Vaccine induced antibody absent [Unknown]
  - Immunosuppression [Unknown]

NARRATIVE: CASE EVENT DATE: 20210101
